FAERS Safety Report 17578622 (Version 1)
Quarter: 2020Q1

REPORT INFORMATION
  Report Type: Spontaneous
  Country: GB (occurrence: GB)
  Receive Date: 20200325
  Receipt Date: 20200325
  Transmission Date: 20200409
  Serious: Yes (Hospitalization)
  Sender: FDA-Public Use
  Company Number: GB-TEVA-2020-GB-1208656

PATIENT
  Age: 40 Year
  Sex: Female
  Weight: 50.8 kg

DRUGS (1)
  1. QUININE [Suspect]
     Active Substance: QUININE
     Indication: FOREIGN TRAVEL
     Dosage: 100 MG
     Route: 048
     Dates: start: 20190901, end: 20191001

REACTIONS (3)
  - Pain [Unknown]
  - Vomiting [Recovered/Resolved]
  - Migraine [Recovered/Resolved]
